FAERS Safety Report 11393314 (Version 2)
Quarter: 2019Q4

REPORT INFORMATION
  Report Type: Report from Study
  Country: US (occurrence: US)
  Receive Date: 20150818
  Receipt Date: 20191218
  Transmission Date: 20200122
  Serious: Yes (Hospitalization)
  Sender: FDA-Public Use
  Company Number: US-UCBSA-2015025962

PATIENT
  Age: 18 Year
  Sex: Female
  Weight: 54.6 kg

DRUGS (3)
  1. LACOSAMIDE EP [Suspect]
     Active Substance: LACOSAMIDE
     Indication: EPILEPSY
     Dosage: 200MG AM AND 250MG PM, 2X/DAY (BID)
     Route: 048
     Dates: start: 20150708, end: 20150808
  2. LACOSAMIDE EP [Suspect]
     Active Substance: LACOSAMIDE
     Dosage: 250 MG, 2X/DAY (BID)
     Route: 048
     Dates: start: 20150809
  3. LACOSAMIDE EP [Suspect]
     Active Substance: LACOSAMIDE
     Dosage: 250 MG, 2X/DAY (BID)
     Route: 048
     Dates: end: 20150708

REACTIONS (1)
  - Seizure [Recovered/Resolved]

NARRATIVE: CASE EVENT DATE: 20150808
